FAERS Safety Report 5094749-8 (Version None)
Quarter: 2006Q3

REPORT INFORMATION
  Report Type: 
  Country: None (occurrence: None)
  Receive Date: 20060731
  Receipt Date: 20060424
  Transmission Date: 20061208
  Serious: No
  Sender: FDA-Public Use
  Company Number: 2006PV012644

PATIENT
  Age: 81 Year
  Sex: Female
  Weight: 78.0187 kg

DRUGS (3)
  1. BYETTA [Suspect]
     Indication: DIABETES MELLITUS NON-INSULIN-DEPENDENT
     Dosage: 10 MCG;BID;SC
     Route: 058
     Dates: start: 20050601
  2. NOVOLIN 70/30 [Concomitant]
  3. REGULAR INSULIN [Concomitant]

REACTIONS (2)
  - ACCIDENT [None]
  - LIMB INJURY [None]
